FAERS Safety Report 13480673 (Version 2)
Quarter: 2017Q3

REPORT INFORMATION
  Report Type: Report from Study
  Country: US (occurrence: US)
  Receive Date: 20170424
  Receipt Date: 20170728
  Transmission Date: 20171127
  Serious: No
  Sender: FDA-Public Use
  Company Number: US-AMGEN-USASL2017042724

PATIENT
  Age: 58 Year
  Sex: Male

DRUGS (1)
  1. REPATHA [Suspect]
     Active Substance: EVOLOCUMAB
     Indication: HEPATIC ENZYME INCREASED
     Dosage: 140 MG, Q2WK
     Route: 065

REACTIONS (3)
  - Drug dose omission [Unknown]
  - Low density lipoprotein increased [Unknown]
  - Off label use [Unknown]
